FAERS Safety Report 22375525 (Version 1)
Quarter: 2023Q2

REPORT INFORMATION
  Report Type: Spontaneous
  Country: ES (occurrence: ES)
  Receive Date: 20230527
  Receipt Date: 20230527
  Transmission Date: 20230721
  Serious: Yes (Hospitalization, Other)
  Sender: FDA-Public Use
  Company Number: ES-SUN PHARMACEUTICAL INDUSTRIES LTD-2023R1-388836

PATIENT
  Age: 77 Year
  Sex: Female

DRUGS (2)
  1. DIGOXIN [Interacting]
     Active Substance: DIGOXIN
     Indication: Atrial fibrillation
     Dosage: UNK
     Route: 065
  2. OSIMERTINIB [Suspect]
     Active Substance: OSIMERTINIB
     Indication: Small cell lung cancer
     Dosage: 80 MILLIGRAM, DAILY
     Route: 065
     Dates: start: 202203

REACTIONS (5)
  - Drug interaction [Unknown]
  - Cardioactive drug level increased [Unknown]
  - Hypomagnesaemia [Unknown]
  - Diarrhoea [Unknown]
  - Mucosal inflammation [Unknown]
